FAERS Safety Report 11656819 (Version 2)
Quarter: 2015Q4

REPORT INFORMATION
  Report Type: Spontaneous
  Country: US (occurrence: US)
  Receive Date: 20151023
  Receipt Date: 20151207
  Transmission Date: 20160304
  Serious: No
  Sender: FDA-Public Use
  Company Number: US-PFIZER INC-2015345618

PATIENT
  Age: 81 Year
  Sex: Male

DRUGS (1)
  1. GABAPENTIN. [Suspect]
     Active Substance: GABAPENTIN
     Indication: PARAESTHESIA
     Dosage: 100 MG, QD
     Route: 048
     Dates: start: 20151001, end: 20151004

REACTIONS (14)
  - Irritability [Unknown]
  - Dyspnoea [Recovered/Resolved]
  - Muscle twitching [Recovered/Resolved]
  - Disturbance in attention [Unknown]
  - Asthenia [Recovered/Resolved]
  - Dizziness [Recovered/Resolved]
  - Pruritus [Recovered/Resolved]
  - Mood altered [Recovered/Resolved]
  - Somnolence [Unknown]
  - Drug ineffective for unapproved indication [Unknown]
  - Balance disorder [Recovered/Resolved]
  - Restlessness [Unknown]
  - Depressed mood [Unknown]
  - Headache [Unknown]

NARRATIVE: CASE EVENT DATE: 20151001
